FAERS Safety Report 16901305 (Version 2)
Quarter: 2019Q4

REPORT INFORMATION
  Report Type: Spontaneous
  Country: DE (occurrence: DE)
  Receive Date: 20191009
  Receipt Date: 20191025
  Transmission Date: 20200122
  Serious: Yes (Death, Other)
  Sender: FDA-Public Use
  Company Number: DE-B.I. PHARMACEUTICALS,INC./RIDGEFIELD-2019-BI-106432

PATIENT
  Age: 65 Year
  Sex: Male

DRUGS (3)
  1. VARGATEF [Suspect]
     Active Substance: NINTEDANIB
     Indication: ADENOCARCINOMA
     Route: 065
     Dates: start: 201707, end: 201707
  2. DOCETAXEL. [Suspect]
     Active Substance: DOCETAXEL
     Indication: ADENOCARCINOMA
     Route: 065
     Dates: start: 201705, end: 201706
  3. DOCETAXEL. [Suspect]
     Active Substance: DOCETAXEL
     Dosage: 60MG/M2 D1 QW3, 2 CYCLES
     Route: 065
     Dates: start: 201707, end: 201707

REACTIONS (4)
  - Death [Fatal]
  - Polyneuropathy [Unknown]
  - Fatigue [Unknown]
  - Malignant neoplasm progression [Unknown]

NARRATIVE: CASE EVENT DATE: 201707
